FAERS Safety Report 4603056-6 (Version None)
Quarter: 2005Q1

REPORT INFORMATION
  Report Type: 
  Country: None (occurrence: None)
  Receive Date: 20050214
  Receipt Date: 20041213
  Transmission Date: 20050727
  Serious: No
  Sender: FDA-Public Use
  Company Number: USA041285517

PATIENT
  Age: 47 Year
  Sex: Male

DRUGS (3)
  1. CIALIS [Suspect]
     Dosage: 20 MG
  2. ACTOS [Concomitant]
  3. GLUCOPHAGE [Concomitant]

REACTIONS (3)
  - HEADACHE [None]
  - MYALGIA [None]
  - OVERDOSE [None]
